FAERS Safety Report 5140594-4 (Version None)
Quarter: 2006Q4

REPORT INFORMATION
  Report Type: 
  Country: None (occurrence: None)
  Receive Date: 20061024
  Receipt Date: 20061011
  Transmission Date: 20070319
  Serious: Yes (Hospitalization)
  Sender: FDA-Public Use
  Company Number: FR200610001698

PATIENT
  Age: 53 Year
  Sex: Male
  Weight: 85 kg

DRUGS (7)
  1. CIALIS [Suspect]
     Dosage: 1 D/F, MONTHLY (1/M), ORAL
     Route: 048
     Dates: start: 20020101
  2. ALLOPURINOL [Concomitant]
  3. AMARYL [Concomitant]
  4. AMLODIPINE BESYLATE [Concomitant]
  5. PERINDOPRIL ERBUMINE [Concomitant]
  6. ATORVASTATIN CALCIUM [Concomitant]
  7. METFORMIN [Concomitant]

REACTIONS (1)
  - HEPATITIS CHOLESTATIC [None]
